FAERS Safety Report 13242364 (Version 1)
Quarter: 2017Q1

REPORT INFORMATION
  Report Type: Spontaneous
  Country: US (occurrence: US)
  Receive Date: 20170216
  Receipt Date: 20170216
  Transmission Date: 20170428
  Serious: Yes (Other)
  Sender: FDA-Public Use
  Company Number: None

PATIENT
  Age: 48 Year
  Sex: Female
  Weight: 72 kg

DRUGS (1)
  1. CEFUROXIME. [Suspect]
     Active Substance: CEFUROXIME
     Indication: RESPIRATORY DISORDER
     Route: 048
     Dates: start: 20170210, end: 20170213

REACTIONS (4)
  - Hypoaesthesia [None]
  - Paraesthesia [None]
  - Peripheral coldness [None]
  - Feeling hot [None]

NARRATIVE: CASE EVENT DATE: 20170213
